FAERS Safety Report 10650501 (Version 1)
Quarter: 2014Q4

REPORT INFORMATION
  Report Type: Spontaneous
  Country: US (occurrence: US)
  Receive Date: 20141214
  Receipt Date: 20141214
  Transmission Date: 20150529
  Serious: No
  Sender: FDA-Public Use
  Company Number: US-BAUSCH-SYM-2014-23511

PATIENT
  Sex: Female

DRUGS (3)
  1. XENAZINE [Suspect]
     Active Substance: TETRABENAZINE
     Indication: HUNTINGTON^S DISEASE
     Dosage: 2 TABLETS ORALLY IN THE MORNING AND 2 TABLETS ORALLY IN THE EVENING
     Route: 048
     Dates: start: 201306
  2. XENAZINE [Suspect]
     Active Substance: TETRABENAZINE
     Dosage: 2 TABLETS ORALLY IN THE MORNING AND 2 TABLETS ORALLY IN THE EVENING
     Route: 048
  3. XENAZINE [Suspect]
     Active Substance: TETRABENAZINE
     Dosage: TWO TABLETS TWICE DAILY FOR APPROXIMATELY 5 DAYS
     Route: 048

REACTIONS (2)
  - Medication error [Recovered/Resolved]
  - Fatigue [Recovered/Resolved]
